FAERS Safety Report 6925916-3 (Version None)
Quarter: 2010Q3

REPORT INFORMATION
  Report Type: 
  Country: None (occurrence: None)
  Receive Date: 20100816
  Receipt Date: 20100805
  Transmission Date: 20110219
  Serious: Yes (Hospitalization)
  Sender: FDA-Public Use
  Company Number: PHHO2010DE11896

PATIENT
  Sex: Female
  Weight: 50.6 kg

DRUGS (2)
  1. AEB071 AEB+GELCAP [Suspect]
     Indication: RENAL TRANSPLANT
     Dosage: 100 MG,
     Route: 048
     Dates: end: 20100806
  2. CERTICAN [Suspect]
     Indication: RENAL TRANSPLANT
     Dosage: 0.5 MG,
     Dates: end: 20100806

REACTIONS (3)
  - DRUG INEFFECTIVE [None]
  - RENAL FAILURE ACUTE [None]
  - TRANSPLANT FAILURE [None]
